FAERS Safety Report 16980084 (Version 1)
Quarter: 2019Q4

REPORT INFORMATION
  Report Type: Spontaneous
  Country: US (occurrence: US)
  Receive Date: 20191031
  Receipt Date: 20191031
  Transmission Date: 20200122
  Serious: Yes (Other)
  Sender: FDA-Public Use
  Company Number: US-009507513-1910USA014941

PATIENT

DRUGS (1)
  1. TEMODAR [Suspect]
     Active Substance: TEMOZOLOMIDE
     Indication: ASTROCYTOMA
     Dosage: TEMOZOLOMIDE MONOTHERAPY X 2 CYCLES

REACTIONS (4)
  - Seizure [Unknown]
  - Obstruction [Unknown]
  - Treatment failure [Unknown]
  - Developmental delay [Unknown]
